FAERS Safety Report 5373626-9 (Version None)
Quarter: 2007Q2

REPORT INFORMATION
  Report Type: 
  Country: None (occurrence: None)
  Receive Date: 20070628
  Receipt Date: 20070618
  Transmission Date: 20071010
  Serious: Yes (Other)
  Sender: FDA-Public Use
  Company Number: JP-ROCHE-492020

PATIENT
  Age: 5 Year
  Sex: Male
  Weight: 17 kg

DRUGS (2)
  1. TAMIFLU [Suspect]
     Dosage: FORM: DRY SYRUP.
     Route: 048
     Dates: start: 20070304, end: 20070304
  2. CLEMASTINE FUMARATE [Concomitant]
     Dosage: DRUG NAME REPORTED AS CLE MAMALLET.
     Route: 048
     Dates: start: 20070304, end: 20070312

REACTIONS (2)
  - ABNORMAL BEHAVIOUR [None]
  - TREMOR [None]
